FAERS Safety Report 6356508-5 (Version None)
Quarter: 2009Q3

REPORT INFORMATION
  Report Type: 
  Country: None (occurrence: None)
  Receive Date: 20090915
  Receipt Date: 20090908
  Transmission Date: 20100115
  Serious: Yes (Life-Threatening)
  Sender: FDA-Public Use
  Company Number: B0592029A

PATIENT
  Age: 68 Year
  Sex: Male

DRUGS (4)
  1. BECLOMETASONE DIPROPIONATE [Suspect]
     Indication: ASTHMA
     Route: 055
     Dates: start: 20060622
  2. CLOPIDOGREL [Concomitant]
     Route: 065
  3. SIMVASTATIN [Concomitant]
     Route: 065
  4. SERTRALINE HCL [Concomitant]

REACTIONS (1)
  - UNDERDOSE [None]
